FAERS Safety Report 18277555 (Version 1)
Quarter: 2020Q3

REPORT INFORMATION
  Report Type: Spontaneous
  Country: DE (occurrence: DE)
  Receive Date: 20200917
  Receipt Date: 20200917
  Transmission Date: 20201103
  Serious: Yes (Hospitalization, Other)
  Sender: FDA-Public Use
  Company Number: DE-JNJFOC-20200903948

PATIENT
  Age: 22 Year
  Sex: Male

DRUGS (12)
  1. BIPERIDEN [Concomitant]
     Active Substance: BIPERIDEN
     Route: 065
     Dates: start: 20200320, end: 20200501
  2. RISPERDAL [Suspect]
     Active Substance: RISPERIDONE
     Route: 065
     Dates: start: 20200306, end: 20200310
  3. RISPERDAL [Suspect]
     Active Substance: RISPERIDONE
     Route: 065
     Dates: start: 20200420, end: 20200421
  4. CARIPRAZINE [Suspect]
     Active Substance: CARIPRAZINE
     Indication: PRODUCT USED FOR UNKNOWN INDICATION
     Dosage: START OF ADVERSE EVENT
     Route: 065
     Dates: start: 20200313, end: 20200326
  5. CARIPRAZINE [Suspect]
     Active Substance: CARIPRAZINE
     Route: 065
     Dates: start: 20200408
  6. RISPERDAL [Suspect]
     Active Substance: RISPERIDONE
     Route: 065
     Dates: start: 20200406, end: 20200414
  7. RISPERDAL [Suspect]
     Active Substance: RISPERIDONE
     Indication: PRODUCT USED FOR UNKNOWN INDICATION
     Dosage: ADVERSE EVENT START WITH THIS DOSE
     Route: 065
     Dates: start: 20200311, end: 20200316
  8. RISPERDAL [Suspect]
     Active Substance: RISPERIDONE
     Route: 065
     Dates: start: 20200317, end: 20200318
  9. RISPERDAL [Suspect]
     Active Substance: RISPERIDONE
     Route: 065
     Dates: start: 20200319, end: 20200323
  10. RISPERDAL [Suspect]
     Active Substance: RISPERIDONE
     Dosage: ADVERSE EVENT START WITH THIS DOSE
     Route: 065
     Dates: start: 20200324, end: 20200405
  11. RISPERDAL [Suspect]
     Active Substance: RISPERIDONE
     Route: 065
     Dates: start: 20200415, end: 20200419
  12. CARIPRAZINE [Suspect]
     Active Substance: CARIPRAZINE
     Route: 065
     Dates: start: 20200327, end: 20200407

REACTIONS (9)
  - Bradykinesia [Recovered/Resolved]
  - Muscle rigidity [Recovered/Resolved]
  - Loss of personal independence in daily activities [Recovered/Resolved]
  - Parkinsonism [Recovered/Resolved]
  - Mobility decreased [Recovered/Resolved]
  - Fall [Recovered/Resolved]
  - Enuresis [Recovered/Resolved]
  - Tremor [Recovered/Resolved]
  - Hypokinesia [Recovered/Resolved]

NARRATIVE: CASE EVENT DATE: 20200326
